FAERS Safety Report 5582824-0 (Version None)
Quarter: 2008Q1

REPORT INFORMATION
  Report Type: 
  Country: None (occurrence: None)
  Receive Date: 20080107
  Receipt Date: 20071226
  Transmission Date: 20080703
  Serious: Yes (Hospitalization)
  Sender: FDA-Public Use
  Company Number: FR-AVENTIS-200714174FR

PATIENT
  Age: 56 Year
  Sex: Male

DRUGS (3)
  1. LASIX [Suspect]
     Route: 048
     Dates: end: 20071001
  2. IMUREL                             /00001501/ [Suspect]
     Route: 048
     Dates: end: 20071101
  3. ALLOPURINOL EUROGENERICS [Suspect]
     Route: 048
     Dates: start: 20070901, end: 20071001

REACTIONS (1)
  - BONE MARROW FAILURE [None]
